FAERS Safety Report 19623841 (Version 2)
Quarter: 2021Q4

REPORT INFORMATION
  Report Type: Spontaneous
  Country: JP (occurrence: JP)
  Receive Date: 20210729
  Receipt Date: 20211107
  Transmission Date: 20220303
  Serious: Yes (Other)
  Sender: FDA-Public Use
  Company Number: JP-ONO-2021JP017892

PATIENT
  Sex: Female

DRUGS (2)
  1. KYPROLIS [Suspect]
     Active Substance: CARFILZOMIB
     Indication: Plasma cell myeloma
     Dosage: UNK
     Route: 041
     Dates: start: 20201221, end: 20210721
  2. DEXAMETHASONE [Concomitant]
     Active Substance: DEXAMETHASONE
     Indication: Plasma cell myeloma
     Dosage: UNK
     Route: 065
     Dates: start: 20201221

REACTIONS (1)
  - Intravascular haemolysis [Recovered/Resolved]

NARRATIVE: CASE EVENT DATE: 20210720
